FAERS Safety Report 10171311 (Version 1)
Quarter: 2014Q2

REPORT INFORMATION
  Report Type: Spontaneous
  Country: US (occurrence: US)
  Receive Date: 20140514
  Receipt Date: 20140514
  Transmission Date: 20141212
  Serious: No
  Sender: FDA-Public Use
  Company Number: US-PFIZER INC-2014131189

PATIENT
  Age: 55 Year
  Sex: Female
  Weight: 90.7 kg

DRUGS (1)
  1. EFFEXOR XR [Suspect]
     Indication: HOT FLUSH
     Dosage: 75 MG, DAILY
     Dates: start: 200411

REACTIONS (4)
  - Dizziness [Unknown]
  - Anxiety [Unknown]
  - Hyperhidrosis [Unknown]
  - Activities of daily living impaired [Unknown]
